FAERS Safety Report 24692456 (Version 1)
Quarter: 2024Q4

REPORT INFORMATION
  Report Type: Spontaneous
  Country: US (occurrence: None)
  Receive Date: 20241203
  Receipt Date: 20241203
  Transmission Date: 20250115
  Serious: Yes (Hospitalization)
  Sender: Public
  Company Number: None

PATIENT
  Sex: Female

DRUGS (4)
  1. AMBRISENTAN [Suspect]
     Active Substance: AMBRISENTAN
     Indication: Pulmonary arterial hypertension
     Dosage: FREQUENCY : DAILY;?
     Route: 048
     Dates: start: 20210615
  2. LASIX TAB 20MG [Concomitant]
  3. PANTOPRAZOLE TAB 40MG [Concomitant]
  4. SUCRALFATE TAB 1GM [Concomitant]

REACTIONS (1)
  - Respiratory failure [None]
